FAERS Safety Report 12465113 (Version 1)
Quarter: 2016Q2

REPORT INFORMATION
  Report Type: Spontaneous
  Country: AE (occurrence: AE)
  Receive Date: 20160614
  Receipt Date: 20160614
  Transmission Date: 20160815
  Serious: Yes (Other)
  Sender: FDA-Public Use
  Company Number: PHHY2016AE078872

PATIENT
  Sex: Male
  Weight: 76 kg

DRUGS (6)
  1. ENTRESTO [Suspect]
     Active Substance: SACUBITRIL\VALSARTAN
     Indication: SYSTOLIC DYSFUNCTION
     Dosage: 100 (UNITS UNKNOWN), BID
     Route: 048
  2. CARVEDILOL. [Concomitant]
     Active Substance: CARVEDILOL
     Indication: SYSTOLIC DYSFUNCTION
     Dosage: 6.25 MG, QD
     Route: 048
  3. RAMIPRIL. [Concomitant]
     Active Substance: RAMIPRIL
     Indication: SYSTOLIC DYSFUNCTION
     Dosage: 2.5 MG, UNK
     Route: 048
  4. SPIRONOLACTONE. [Concomitant]
     Active Substance: SPIRONOLACTONE
     Indication: SYSTOLIC DYSFUNCTION
     Dosage: 25 MG, UNK
     Route: 048
  5. FUROSEMIDE. [Concomitant]
     Active Substance: FUROSEMIDE
     Indication: SYSTOLIC DYSFUNCTION
     Dosage: 20 MG, QD
     Route: 048
  6. DIGOXIN. [Concomitant]
     Active Substance: DIGOXIN
     Indication: SYSTOLIC DYSFUNCTION
     Dosage: 125 UG, QD
     Route: 048

REACTIONS (2)
  - Pruritus [Recovered/Resolved]
  - Excoriation [Recovered/Resolved]
